FAERS Safety Report 12156488 (Version 2)
Quarter: 2016Q2

REPORT INFORMATION
  Report Type: Report from Study
  Country: CZ (occurrence: CZ)
  Receive Date: 20160307
  Receipt Date: 20160621
  Transmission Date: 20160815
  Serious: Yes (Hospitalization, Other)
  Sender: FDA-Public Use
  Company Number: CZ-BRISTOL-MYERS SQUIBB COMPANY-16520686

PATIENT
  Sex: Male

DRUGS (4)
  1. IPILIMUMAB [Suspect]
     Active Substance: IPILIMUMAB
     Dosage: 146.7 MG, QD
     Route: 042
     Dates: start: 201404
  2. IPILIMUMAB [Suspect]
     Active Substance: IPILIMUMAB
     Indication: METASTATIC MALIGNANT MELANOMA
     Dosage: 146.7 MG, QD
     Route: 042
     Dates: start: 20120320, end: 20120410
  3. IPILIMUMAB [Suspect]
     Active Substance: IPILIMUMAB
     Dosage: 146.7 MG, QD
     Route: 042
     Dates: start: 201301
  4. IPILIMUMAB [Suspect]
     Active Substance: IPILIMUMAB
     Dosage: 146.7 MG, QD
     Route: 042
     Dates: start: 20120523

REACTIONS (3)
  - Off label use [Unknown]
  - Thyroiditis [Unknown]
  - Hypersensitivity [Unknown]
